FAERS Safety Report 4693372-4 (Version None)
Quarter: 2005Q2

REPORT INFORMATION
  Report Type: 
  Country: None (occurrence: None)
  Receive Date: 20050617
  Receipt Date: 20050607
  Transmission Date: 20051028
  Serious: Yes (Death)
  Sender: FDA-Public Use
  Company Number: US-JNJFOC-20050402030

PATIENT
  Sex: Female
  Weight: 49.9 kg

DRUGS (4)
  1. DOXIL [Suspect]
     Indication: NON-HODGKIN'S LYMPHOMA
     Route: 042
  2. CYTOXAN [Concomitant]
     Indication: LYMPHOMA
  3. VINCRISTINE [Concomitant]
  4. SOLU-MEDROL [Concomitant]

REACTIONS (2)
  - MALIGNANT NEOPLASM PROGRESSION [None]
  - NON-HODGKIN'S LYMPHOMA [None]
